FAERS Safety Report 19740720 (Version 1)
Quarter: 2021Q3

REPORT INFORMATION
  Report Type: Spontaneous
  Country: US (occurrence: US)
  Receive Date: 20210824
  Receipt Date: 20210824
  Transmission Date: 20211014
  Serious: Yes (Death, Life-Threatening, Other)
  Sender: FDA-Public Use
  Company Number: US-AMGEN-USASP2021126553

PATIENT

DRUGS (4)
  1. FILGRASTIM [Suspect]
     Active Substance: FILGRASTIM
     Indication: PROPHYLAXIS
     Dosage: 5 MICROGRAM/KILOGRAM
     Route: 058
  2. FLUDARABINE [Concomitant]
     Active Substance: FLUDARABINE PHOSPHATE
     Dosage: 30 MILLIGRAM/SQ. METER
     Route: 042
  3. CYTARABINE. [Concomitant]
     Active Substance: CYTARABINE
     Dosage: 2000 MILLIGRAM/SQ. METER, QD
     Route: 042
  4. IDARUBICIN [Concomitant]
     Active Substance: IDARUBICIN
     Dosage: 10 MILLIGRAM/SQ. METER, QD
     Route: 042

REACTIONS (21)
  - Acute myeloid leukaemia recurrent [Fatal]
  - Haemorrhage [Unknown]
  - Colitis [Unknown]
  - Renal injury [Unknown]
  - Device related infection [Unknown]
  - Disseminated intravascular coagulation [Unknown]
  - Cerebrovascular accident [Unknown]
  - Blast injury [Unknown]
  - Hepatitis B reactivation [Fatal]
  - Infection [Fatal]
  - Drug ineffective [Unknown]
  - Death [Fatal]
  - Mucocutaneous disorder [Unknown]
  - Cardiac disorder [Unknown]
  - Pneumonia [Fatal]
  - Febrile neutropenia [Unknown]
  - Thrombosis [Unknown]
  - Hepatic failure [Fatal]
  - Bacteraemia [Unknown]
  - Pancytopenia [Unknown]
  - Graft versus host disease [Unknown]
